FAERS Safety Report 15441229 (Version 2)
Quarter: 2018Q4

REPORT INFORMATION
  Report Type: Spontaneous
  Country: US (occurrence: US)
  Receive Date: 20180928
  Receipt Date: 20181025
  Transmission Date: 20190204
  Serious: No
  Sender: FDA-Public Use
  Company Number: US-ASTRAZENECA-2018SF11965

PATIENT
  Age: 50 Year
  Sex: Female
  Weight: 78 kg

DRUGS (2)
  1. METHOTREXATE. [Concomitant]
     Active Substance: METHOTREXATE
     Indication: ARTHRITIS
  2. SYMBICORT [Suspect]
     Active Substance: BUDESONIDE\FORMOTEROL FUMARATE DIHYDRATE
     Dosage: 160/4.5MCG, 2 PUFFS, TWICE DAILY
     Route: 055
     Dates: start: 2015

REACTIONS (8)
  - Secretion discharge [Not Recovered/Not Resolved]
  - Wrong technique in product usage process [Unknown]
  - Pulmonary pain [Recovered/Resolved]
  - Device malfunction [Unknown]
  - Intentional product misuse [Unknown]
  - Cough [Not Recovered/Not Resolved]
  - Lung disorder [Recovered/Resolved]
  - Product dose omission [Unknown]

NARRATIVE: CASE EVENT DATE: 2015
